FAERS Safety Report 7365220-5 (Version None)
Quarter: 2011Q1

REPORT INFORMATION
  Report Type: 
  Country: None (occurrence: None)
  Receive Date: 20110321
  Receipt Date: 20110310
  Transmission Date: 20110831
  Serious: Yes (Other)
  Sender: FDA-Public Use
  Company Number: GB-BRISTOL-MYERS SQUIBB COMPANY-15609977

PATIENT
  Age: 42 Year
  Sex: Female

DRUGS (3)
  1. BETAMETHASONE [Suspect]
     Indication: PRENATAL CARE
     Dosage: FORMULATION:INJECTION NO OF DOSES:2
     Route: 030
  2. ISOPHANE INSULIN HUMAN [Suspect]
     Indication: GESTATIONAL DIABETES
     Dosage: 8 DF
     Route: 058
  3. METFORMIN HCL [Suspect]
     Indication: GESTATIONAL DIABETES

REACTIONS (5)
  - NAUSEA [None]
  - DIABETIC KETOACIDOSIS [None]
  - PREGNANCY [None]
  - VOMITING [None]
  - DYSPNOEA [None]
